FAERS Safety Report 10050263 (Version 3)
Quarter: 2014Q2

REPORT INFORMATION
  Report Type: Report from Study
  Country: US (occurrence: US)
  Receive Date: 20140401
  Receipt Date: 20140407
  Transmission Date: 20141212
  Serious: Yes (Hospitalization)
  Sender: FDA-Public Use
  Company Number: US-JNJFOC-20140316035

PATIENT
  Age: 11 Year
  Sex: Male
  Weight: 34.3 kg

DRUGS (14)
  1. REMICADE [Suspect]
     Indication: INFLAMMATORY BOWEL DISEASE
     Route: 042
  2. REMICADE [Suspect]
     Indication: INFLAMMATORY BOWEL DISEASE
     Route: 042
     Dates: start: 20130613
  3. REMICADE [Suspect]
     Indication: INFLAMMATORY BOWEL DISEASE
     Dosage: LAST INFLIXIMAB INFUSION
     Route: 042
     Dates: start: 20131227, end: 20131227
  4. DULERA [Concomitant]
     Route: 065
  5. FLONASE [Concomitant]
     Route: 065
  6. ALBUTEROL [Concomitant]
     Route: 065
  7. PREDNISONE [Concomitant]
     Route: 065
  8. MONTELUKAST [Concomitant]
     Route: 065
  9. OMEPRAZOLE [Concomitant]
     Route: 065
  10. MIRALAX [Concomitant]
     Route: 065
  11. TRAMADOL [Concomitant]
     Route: 065
  12. ALLEGRA [Concomitant]
     Route: 065
  13. KENALOG [Concomitant]
     Route: 065
  14. INFLUENZA VACCINE [Concomitant]
     Route: 065

REACTIONS (1)
  - Anal abscess [Recovered/Resolved]
